FAERS Safety Report 13958387 (Version 1)
Quarter: 2017Q3

REPORT INFORMATION
  Report Type: Spontaneous
  Country: US (occurrence: US)
  Receive Date: 20170911
  Receipt Date: 20170911
  Transmission Date: 20171128
  Serious: No
  Sender: FDA-Public Use
  Company Number: US-ROCHE-1973867

PATIENT
  Sex: Female

DRUGS (1)
  1. TECENTRIQ [Suspect]
     Active Substance: ATEZOLIZUMAB
     Indication: HEREDITARY NON-POLYPOSIS COLORECTAL CANCER SYNDROME
     Dosage: RECEIVED 9 INFUSIONS?LAST INFUSION RECEIVED ON 27/JUL/2017
     Route: 042

REACTIONS (6)
  - Rosacea [Not Recovered/Not Resolved]
  - Thirst [Not Recovered/Not Resolved]
  - Ill-defined disorder [Unknown]
  - Dizziness [Not Recovered/Not Resolved]
  - Feeling cold [Unknown]
  - Nausea [Not Recovered/Not Resolved]
